FAERS Safety Report 17049624 (Version 1)
Quarter: 2019Q4

REPORT INFORMATION
  Report Type: Spontaneous
  Country: GB (occurrence: GB)
  Receive Date: 20191119
  Receipt Date: 20191119
  Transmission Date: 20200122
  Serious: Yes (Hospitalization)
  Sender: FDA-Public Use
  Company Number: GB-PERRIGO-19GB013761

PATIENT
  Age: 69 Year
  Sex: Female

DRUGS (1)
  1. RANITIDINE HYDROCHLORIDE. [Suspect]
     Active Substance: RANITIDINE HYDROCHLORIDE
     Indication: PRODUCT USED FOR UNKNOWN INDICATION
     Dosage: UNKNOWN DOSE
     Route: 048

REACTIONS (5)
  - Insomnia [Recovering/Resolving]
  - Injury [Recovering/Resolving]
  - Ulcer haemorrhage [Recovering/Resolving]
  - Product dose omission [Not Recovered/Not Resolved]
  - Product dispensing error [Unknown]
